FAERS Safety Report 7879725-1 (Version None)
Quarter: 2011Q4

REPORT INFORMATION
  Report Type: 
  Country: None (occurrence: None)
  Receive Date: 20111101
  Receipt Date: 20111025
  Transmission Date: 20120403
  Serious: Yes (Other)
  Sender: FDA-Public Use
  Company Number: US-BAYER-2011-017108

PATIENT
  Age: 39 Year
  Sex: Female
  Weight: 82.086 kg

DRUGS (4)
  1. MIRENA [Suspect]
     Indication: MENORRHAGIA
     Dosage: 20 ?G/D, CONT
     Route: 015
     Dates: start: 20101124, end: 20101210
  2. NAPROXEN [Concomitant]
     Dosage: UNK UNK, PRN
     Route: 048
  3. SPIRACTIN [Concomitant]
     Dosage: 50 MG, QD
     Route: 048
     Dates: start: 20100612
  4. MULTI-VITAMIN [Concomitant]
     Route: 048

REACTIONS (2)
  - DEVICE DISLOCATION [None]
  - PELVIC PAIN [None]
